FAERS Safety Report 7391691-4 (Version None)
Quarter: 2011Q2

REPORT INFORMATION
  Report Type: 
  Country: None (occurrence: None)
  Receive Date: 20110404
  Receipt Date: 20080317
  Transmission Date: 20111010
  Serious: Yes (Death, Other)
  Sender: FDA-Public Use
  Company Number: US-BAYER-201038486NA

PATIENT
  Sex: Female
  Weight: 144.22 kg

DRUGS (21)
  1. TRASYLOL [Suspect]
     Indication: CORONARY ARTERY BYPASS
     Dosage: INITIAL TEST DOSE OF 1ML
     Route: 042
     Dates: start: 20051215
  2. TRASYLOL [Suspect]
     Indication: MITRAL VALVE REPAIR
     Dosage: 100CC INCREASED TO 400CC OVER 1 HOUR, THEN 50CC/HOUR
     Route: 042
     Dates: end: 20051215
  3. TRASYLOL [Suspect]
  4. DIOVAN [Concomitant]
     Dosage: UNK UNK, QD
     Route: 048
  5. AMARYL [Concomitant]
     Dosage: 4 MG, QD
     Route: 048
     Dates: start: 20041001
  6. NORVASC [Concomitant]
     Dosage: 5 MG, QD
     Route: 048
     Dates: start: 20050524
  7. LASIX [Concomitant]
     Dosage: 40 MG, BID
     Route: 048
  8. CRESTOR [Concomitant]
     Dosage: 10 MG, QD
     Route: 048
     Dates: start: 20041001
  9. HEPARIN SODIUM [Concomitant]
     Dosage: 52000 OR 57000 UNITS
     Route: 042
     Dates: start: 20051215
  10. NITROGLYCERIN [Concomitant]
     Dosage: 100 UNK, UNK
     Route: 042
     Dates: start: 20051215
  11. DOPAMINE HYDROCHLORIDE [Concomitant]
     Dosage: UNK
     Dates: start: 20051215, end: 20051218
  12. HYDROCHLOROTHIAZIDE [Concomitant]
     Dosage: 25 MG, QD
     Route: 048
     Dates: start: 20050501
  13. LASIX [Concomitant]
     Dosage: DAILY DOSE 40 MG
     Route: 042
     Dates: start: 20051215
  14. ACTOS [Concomitant]
     Dosage: UNK UNK, QD
     Route: 048
  15. PLATELETS [Concomitant]
     Dosage: 2 U, UNK
  16. VIOXX [Concomitant]
     Dosage: UNK
     Route: 048
     Dates: start: 20020401
  17. LEVAQUIN [Concomitant]
     Dosage: UNK
     Route: 048
     Dates: start: 20051101
  18. HUMAN RED BLOOD CELLS [Concomitant]
     Dosage: 3 U, UNK
     Dates: start: 20051215
  19. SIMVASTATIN [Concomitant]
     Dosage: 20 MG, QD
     Route: 048
  20. VERSED [Concomitant]
     Dosage: UNK
     Route: 042
     Dates: start: 20051215
  21. FRESH FROZEN PLASMA [Concomitant]
     Dosage: 4 U, UNK
     Dates: start: 20051215

REACTIONS (8)
  - INJURY [None]
  - EMOTIONAL DISTRESS [None]
  - RENAL FAILURE [None]
  - RENAL FAILURE ACUTE [None]
  - CARDIO-RESPIRATORY ARREST [None]
  - PAIN [None]
  - RESPIRATORY FAILURE [None]
  - ANHEDONIA [None]
